FAERS Safety Report 20322631 (Version 1)
Quarter: 2022Q1

REPORT INFORMATION
  Report Type: Spontaneous
  Country: SE (occurrence: SE)
  Receive Date: 20220111
  Receipt Date: 20220111
  Transmission Date: 20220423
  Serious: Yes (Life-Threatening)
  Sender: FDA-Public Use
  Company Number: None

PATIENT
  Age: 41 Year
  Sex: Male
  Weight: 110 kg

DRUGS (1)
  1. FLUOXETINE HYDROCHLORIDE [Suspect]
     Active Substance: FLUOXETINE HYDROCHLORIDE
     Indication: Aggression
     Dosage: 20 MG 2 TABLETTER/1 G?NG/DAG
     Route: 048

REACTIONS (1)
  - Haemoglobin increased [Recovered/Resolved]

NARRATIVE: CASE EVENT DATE: 20211211
